FAERS Safety Report 4285631-4 (Version None)
Quarter: 2004Q1

REPORT INFORMATION
  Report Type: 
  Country: None (occurrence: None)
  Receive Date: 20040203
  Receipt Date: 20040129
  Transmission Date: 20041129
  Serious: Yes (Hospitalization)
  Sender: FDA-Public Use
  Company Number: PERC20040005

PATIENT
  Age: 59 Year
  Sex: Male

DRUGS (12)
  1. PERCOCET [Suspect]
     Indication: PAIN
     Dosage: 2 TABS Q4H PO
     Route: 048
     Dates: end: 20031216
  2. OXYCONTIN [Suspect]
     Indication: PAIN
     Dosage: 60 MG BID PO
     Route: 048
  3. TRACLEER [Concomitant]
  4. FUROSEMIDE [Concomitant]
  5. PREDNISONE [Concomitant]
  6. WARFARIN SODIUM [Concomitant]
  7. PANTOPRAZOLE [Concomitant]
  8. BACTRIM [Concomitant]
  9. EPOPOSTENOL SODIUM [Concomitant]
  10. METFORMIN HYDROCHLORIDE [Concomitant]
  11. OXYGEN [Concomitant]
  12. LISINOPRIL [Concomitant]

REACTIONS (6)
  - BLOOD CREATININE INCREASED [None]
  - ENCEPHALOPATHY [None]
  - MENTAL STATUS CHANGES [None]
  - MYOCLONUS [None]
  - OEDEMA PERIPHERAL [None]
  - SOMNOLENCE [None]
